FAERS Safety Report 6676835-1 (Version None)
Quarter: 2010Q2

REPORT INFORMATION
  Report Type: 
  Country: None (occurrence: None)
  Receive Date: 20100409
  Receipt Date: 20100409
  Transmission Date: 20101027
  Serious: Yes (Hospitalization)
  Sender: FDA-Public Use
  Company Number: None

PATIENT
  Sex: Female
  Weight: 32.2054 kg

DRUGS (1)
  1. TYLENOL-500 [Suspect]
     Dosage: 2 EVERY 8HRS
     Dates: start: 20100115, end: 20100117

REACTIONS (2)
  - FAECES DISCOLOURED [None]
  - VOMITING [None]
